FAERS Safety Report 23552871 (Version 1)
Quarter: 2024Q1

REPORT INFORMATION
  Report Type: Spontaneous
  Country: US (occurrence: None)
  Receive Date: 20240221
  Receipt Date: 20240221
  Transmission Date: 20240409
  Serious: No
  Sender: FDA-Public Use
  Company Number: None

PATIENT
  Sex: 0

DRUGS (1)
  1. LAMOTRIGINE [Suspect]
     Active Substance: LAMOTRIGINE

REACTIONS (6)
  - Headache [None]
  - Diarrhoea [None]
  - Vision blurred [None]
  - Nausea [None]
  - Dizziness [None]
  - Heart rate increased [None]
